FAERS Safety Report 9739986 (Version 1)
Quarter: 2013Q4

REPORT INFORMATION
  Report Type: Spontaneous
  Country: US (occurrence: US)
  Receive Date: 20131209
  Receipt Date: 20131209
  Transmission Date: 20140711
  Serious: No
  Sender: FDA-Public Use
  Company Number: US-TEVA-447633USA

PATIENT
  Age: 77 Year
  Sex: Female
  Weight: 78.54 kg

DRUGS (15)
  1. AZILECT [Suspect]
     Indication: PARKINSON^S DISEASE
     Route: 048
     Dates: start: 20130828
  2. SYNTHROID [Concomitant]
     Indication: HYPOTHYROIDISM
  3. CORGARD [Concomitant]
     Indication: HYPERTENSION
  4. DIPHENHYDRAMINE [Concomitant]
  5. MULTIVITAMINS, PLAIN [Concomitant]
     Indication: VITAMIN SUPPLEMENTATION
  6. FISH OIL [Concomitant]
     Indication: VITAMIN SUPPLEMENTATION
  7. ASPIRIN [Concomitant]
     Indication: PROPHYLAXIS
  8. CRESTOR [Concomitant]
     Indication: HYPERCHOLESTEROLAEMIA
  9. PROTONIX [Concomitant]
  10. BENICAR [Concomitant]
     Indication: HYPERTENSION
  11. VITAMIN D NOS [Concomitant]
     Indication: VITAMIN SUPPLEMENTATION
  12. SINEMET [Concomitant]
     Indication: PARKINSON^S DISEASE
  13. COENZYME Q10 [Concomitant]
     Indication: VITAMIN SUPPLEMENTATION
  14. PROBIOTICA [Concomitant]
     Indication: VITAMIN SUPPLEMENTATION
  15. MOBIC [Concomitant]

REACTIONS (6)
  - Hot flush [Not Recovered/Not Resolved]
  - Cold sweat [Not Recovered/Not Resolved]
  - Feeling cold [Not Recovered/Not Resolved]
  - Dizziness [Not Recovered/Not Resolved]
  - Erythema [Not Recovered/Not Resolved]
  - Infection [Recovered/Resolved]
